FAERS Safety Report 5707963-2 (Version None)
Quarter: 2008Q2

REPORT INFORMATION
  Report Type: 
  Country: None (occurrence: None)
  Receive Date: 20080417
  Receipt Date: 20080403
  Transmission Date: 20081010
  Serious: No
  Sender: FDA-Public Use
  Company Number: PHEH2008US03459

PATIENT
  Sex: Female

DRUGS (2)
  1. ENEMA [Concomitant]
  2. ZELNORM [Suspect]

REACTIONS (2)
  - ENEMA ADMINISTRATION [None]
  - INFECTION [None]
